FAERS Safety Report 12613289 (Version 1)
Quarter: 2016Q3

REPORT INFORMATION
  Report Type: Spontaneous
  Country: US (occurrence: None)
  Receive Date: 20160801
  Receipt Date: 20160801
  Transmission Date: 20161109
  Serious: No
  Sender: FDA-Public Use
  Company Number: None

PATIENT
  Age: 68 Year
  Sex: Male
  Weight: 69.4 kg

DRUGS (9)
  1. CARVEDILOL. [Concomitant]
     Active Substance: CARVEDILOL
  2. PRAVASTATIN. [Concomitant]
     Active Substance: PRAVASTATIN
  3. PROMACTA [Concomitant]
     Active Substance: ELTROMBOPAG OLAMINE
  4. CLOPEDIGREL [Concomitant]
  5. LOW DOSE ASPIRIN [Concomitant]
     Active Substance: ASPIRIN
  6. BELSOMRA [Suspect]
     Active Substance: SUVOREXANT
     Indication: INSOMNIA
     Route: 048
     Dates: start: 20160323, end: 20160325
  7. VITAMIN B6 [Concomitant]
     Active Substance: PYRIDOXINE HYDROCHLORIDE
  8. METHYL COBALAMIN [Concomitant]
  9. VITAMIN B12 [Concomitant]
     Active Substance: CYANOCOBALAMIN

REACTIONS (2)
  - Hallucination [None]
  - Drug ineffective [None]

NARRATIVE: CASE EVENT DATE: 20160323
